FAERS Safety Report 5446424-5 (Version None)
Quarter: 2007Q3

REPORT INFORMATION
  Report Type: 
  Country: None (occurrence: None)
  Receive Date: 20070907
  Receipt Date: 20070830
  Transmission Date: 20080115
  Serious: Yes (Other)
  Sender: FDA-Public Use
  Company Number: JP-ASTRAZENECA-2007AP05473

PATIENT
  Age: 20 Year
  Sex: Male

DRUGS (2)
  1. PROPOFOL [Suspect]
     Route: 042
  2. BUPIVACAINE [Suspect]
     Indication: EPIDURAL ANAESTHESIA
     Route: 008
     Dates: start: 20050101

REACTIONS (1)
  - PORPHYRIA ACUTE [None]
